FAERS Safety Report 13892267 (Version 1)
Quarter: 2017Q3

REPORT INFORMATION
  Report Type: Spontaneous
  Country: US (occurrence: US)
  Receive Date: 20170822
  Receipt Date: 20170822
  Transmission Date: 20171127
  Serious: No
  Sender: FDA-Public Use
  Company Number: US-ENDO PHARMACEUTICALS INC-2016-007083

PATIENT
  Age: 77 Year
  Sex: Male
  Weight: 69.01 kg

DRUGS (2)
  1. TESTOPEL [Suspect]
     Active Substance: TESTOSTERONE
     Indication: HYPOGONADISM
     Dosage: 10 PELLETS
     Route: 058
     Dates: start: 20160711, end: 20160711
  2. TESTOPEL [Suspect]
     Active Substance: TESTOSTERONE
     Indication: BLOOD TESTOSTERONE DECREASED
     Dosage: 10 PELLETS
     Route: 058
     Dates: start: 20161115, end: 20161115

REACTIONS (8)
  - Implant site discolouration [Recovering/Resolving]
  - Implant site hypersensitivity [Recovering/Resolving]
  - Blister [Not Recovered/Not Resolved]
  - Implant site vesicles [Not Recovered/Not Resolved]
  - Implant site hypersensitivity [Not Recovered/Not Resolved]
  - Implant site swelling [Recovering/Resolving]
  - Implant site discolouration [Not Recovered/Not Resolved]
  - Prescribed overdose [None]

NARRATIVE: CASE EVENT DATE: 20160712
